FAERS Safety Report 20003600 (Version 3)
Quarter: 2021Q4

REPORT INFORMATION
  Report Type: Spontaneous
  Country: US (occurrence: US)
  Receive Date: 20211027
  Receipt Date: 20211222
  Transmission Date: 20220303
  Serious: Yes (Hospitalization, Other)
  Sender: FDA-Public Use
  Company Number: US-VERTEX PHARMACEUTICALS-2021-016735

PATIENT
  Age: 25 Year
  Sex: Female
  Weight: 68 kg

DRUGS (6)
  1. TRIKAFTA [Suspect]
     Active Substance: ELEXACAFTOR\IVACAFTOR\TEZACAFTOR
     Indication: Cystic fibrosis
     Dosage: UNKNOWN FREQUENCY
     Route: 048
     Dates: start: 20200107
  2. MUCOMYST [Concomitant]
     Active Substance: ACETYLCYSTEINE
     Dosage: 4 ML TWICE DAILY
     Dates: start: 20190607
  3. VENTOLIN [Concomitant]
     Active Substance: ALBUTEROL SULFATE
     Dosage: 2.5 MG /3 ML, 3 ML TWICE DAILY
  4. AZITHROMYCIN [Concomitant]
     Active Substance: AZITHROMYCIN
     Indication: Pseudomonas infection
     Dosage: 250 MG, ONCE DAILY
     Route: 048
  5. PULMICORT TURBUHALER [Concomitant]
     Active Substance: BUDESONIDE
     Indication: Asthma
     Dosage: 0.5 MG/2 ML, 2ML TWICE DAILY
     Dates: start: 20181011
  6. INTAL [Concomitant]
     Active Substance: CROMOLYN SODIUM
     Indication: Asthma
     Dosage: 20 MG/2 ML, 2ML TWICE DAILY
     Dates: start: 20190801

REACTIONS (3)
  - Foetal death [Unknown]
  - Gestational diabetes [Unknown]
  - Exposure during pregnancy [Unknown]

NARRATIVE: CASE EVENT DATE: 20210721
